FAERS Safety Report 4426139-2 (Version None)
Quarter: 2004Q3

REPORT INFORMATION
  Report Type: 
  Country: None (occurrence: None)
  Receive Date: 20040811
  Receipt Date: 20040723
  Transmission Date: 20050211
  Serious: Yes (Other)
  Sender: FDA-Public Use
  Company Number: USA040258488

PATIENT
  Age: 63 Year
  Sex: Female
  Weight: 52 kg

DRUGS (4)
  1. FORTEO [Suspect]
     Indication: OSTEOPOROSIS
     Dosage: 20 UG/1 DAY
     Dates: start: 20031028, end: 20040629
  2. KEFLEX [Concomitant]
  3. CALCIUM [Concomitant]
  4. XANAX (ALPRAZOLAM DUM) [Concomitant]

REACTIONS (11)
  - ASTHENIA [None]
  - BACK PAIN [None]
  - BLOOD CALCIUM INCREASED [None]
  - BONE PAIN [None]
  - COUGH [None]
  - FEELING ABNORMAL [None]
  - MUSCLE CRAMP [None]
  - MYALGIA [None]
  - PANCREATITIS [None]
  - PHARYNGOLARYNGEAL PAIN [None]
  - RHINORRHOEA [None]
